FAERS Safety Report 4443619-4 (Version None)
Quarter: 2004Q3

REPORT INFORMATION
  Report Type: 
  Country: None (occurrence: None)
  Receive Date: 20040903
  Receipt Date: 20040903
  Transmission Date: 20050211
  Serious: Yes (Hospitalization)
  Sender: FDA-Public Use
  Company Number: None

PATIENT
  Sex: Female
  Weight: 138 kg

DRUGS (3)
  1. CUBICIN [Suspect]
     Indication: OSTEOMYELITIS
     Dosage: SEE IMAGE
     Route: 042
     Dates: start: 20040723, end: 20040727
  2. CUBICIN [Suspect]
     Indication: OSTEOMYELITIS
     Dosage: SEE IMAGE
     Route: 042
     Dates: start: 20040728, end: 20040809
  3. . [Concomitant]

REACTIONS (1)
  - RHABDOMYOLYSIS [None]
